FAERS Safety Report 13977457 (Version 8)
Quarter: 2019Q2

REPORT INFORMATION
  Report Type: Report from Study
  Country: CN (occurrence: CN)
  Receive Date: 20170915
  Receipt Date: 20190628
  Transmission Date: 20190711
  Serious: Yes (Other)
  Sender: FDA-Public Use
  Company Number: PHHY2017CN134812

PATIENT
  Age: 42 Year
  Sex: Male

DRUGS (90)
  1. ALPROSTADIL. [Concomitant]
     Active Substance: ALPROSTADIL
     Indication: CARDIOVASCULAR DISORDER
     Dosage: 10 UG, QD
     Route: 042
     Dates: start: 20170804
  2. ATROPINE SULFATE. [Concomitant]
     Active Substance: ATROPINE SULFATE
     Indication: PRODUCT USED FOR UNKNOWN INDICATION
     Dosage: 6.5 MG, PRN
     Route: 042
     Dates: start: 20170814
  3. BETAHISTINE MESILATE [Concomitant]
     Active Substance: BETAHISTINE MESILATE
     Indication: DIZZINESS
     Dosage: 12 MG, TID
     Route: 048
     Dates: start: 20170812
  4. BETALOC [Concomitant]
     Active Substance: METOPROLOL TARTRATE
     Indication: PRODUCT USED FOR UNKNOWN INDICATION
     Dosage: 47.5 MG, PRN
     Dates: start: 20170803, end: 20170803
  5. CEFOTAXIME SODIUM [Concomitant]
     Active Substance: CEFOTAXIME SODIUM
     Indication: PRODUCT USED FOR UNKNOWN INDICATION
     Dosage: 2000 MG, PRN
     Route: 042
     Dates: start: 20170803, end: 20170803
  6. CHYMOTRYPSIN [Concomitant]
     Active Substance: CHYMOTRYPSIN
     Indication: LUNG DISORDER
     Dosage: 4000 IU, TID
     Route: 055
     Dates: start: 20170803
  7. GLUTAMINE COMPLEX [Concomitant]
     Dosage: 670 MG, TID
     Route: 048
     Dates: start: 20170811, end: 20170811
  8. CRAVIT [Concomitant]
     Active Substance: LEVOFLOXACIN
     Indication: INFECTION PROPHYLAXIS
     Dosage: 100 ML, PRN
     Route: 042
     Dates: start: 20170803, end: 20170803
  9. FELODIPINE. [Concomitant]
     Active Substance: FELODIPINE
     Dosage: 5 MG, BID
     Route: 048
     Dates: start: 20170806
  10. IMIPENEM AND CILASTATIN [Concomitant]
     Active Substance: CILASTATIN SODIUM\IMIPENEM
     Indication: PRODUCT USED FOR UNKNOWN INDICATION
     Dosage: 500 MG, PRN
     Route: 042
     Dates: start: 20170804, end: 20170804
  11. INSULIN [Concomitant]
     Active Substance: INSULIN NOS
     Indication: PRODUCT USED FOR UNKNOWN INDICATION
     Dosage: 52 IU, PRN
     Route: 058
     Dates: start: 20170810, end: 20170810
  12. TELMISARTAN. [Concomitant]
     Active Substance: TELMISARTAN
     Indication: PRODUCT USED FOR UNKNOWN INDICATION
     Dosage: 80 MG, PRN
     Route: 048
     Dates: start: 20170803, end: 20170803
  13. ULINASTATIN [Concomitant]
     Active Substance: ULINASTATIN
     Indication: PROPHYLAXIS
     Dosage: 200000 IU, PRN
     Route: 042
     Dates: start: 20170803, end: 20170803
  14. GLUTAMINE [Concomitant]
     Active Substance: GLUTAMINE
     Indication: PROPHYLAXIS
     Dosage: 670 MG, PRN
     Route: 048
     Dates: start: 20170806, end: 20170806
  15. MYFORTIC [Suspect]
     Active Substance: MYCOPHENOLATE SODIUM
     Indication: RENAL TRANSPLANT
     Dosage: 1440 MG, QD
     Route: 065
     Dates: start: 20170803, end: 20170807
  16. BASILIXIMAB [Suspect]
     Active Substance: BASILIXIMAB
     Dosage: 20 MG, QD
     Route: 065
     Dates: start: 20170806, end: 20170806
  17. AMBROXOL HYDROCHLORIDE [Concomitant]
     Active Substance: AMBROXOL HYDROCHLORIDE
     Dosage: 30 MG, TID
     Route: 042
     Dates: start: 20170803
  18. BENAZEPRIL HYDROCHLORIDE. [Concomitant]
     Active Substance: BENAZEPRIL HYDROCHLORIDE
     Indication: PRODUCT USED FOR UNKNOWN INDICATION
     Dosage: 10 ML, PRN
     Route: 048
     Dates: start: 20170803, end: 20170803
  19. BETALOC [Concomitant]
     Active Substance: METOPROLOL TARTRATE
     Dosage: 47.36 MG, QD
     Route: 048
     Dates: start: 20170804
  20. DOPAMINE HYCROCHLORIDE [Concomitant]
     Active Substance: DOPAMINE HYDROCHLORIDE
     Indication: BLOOD PRESSURE INCREASED
     Dosage: 32 MG, PRN
     Route: 042
     Dates: start: 20170814
  21. ESOMEPRAZOLE SODIUM. [Concomitant]
     Active Substance: ESOMEPRAZOLE SODIUM
     Indication: PROPHYLAXIS
     Dosage: 40 MG, PRN
     Route: 042
     Dates: start: 20170802, end: 20170802
  22. HEPARIN SODIUM. [Concomitant]
     Active Substance: HEPARIN SODIUM
     Dosage: 0.2 ML, UNK (LOW MOLECULAR WEIGHT HEPARIN SODIUM INJECTION)
     Route: 058
     Dates: start: 20170803
  23. AMBROXOL HYDROCHLORIDE [Concomitant]
     Active Substance: AMBROXOL HYDROCHLORIDE
     Indication: PRODUCTIVE COUGH
     Dosage: 15 MG, TID
     Route: 055
     Dates: start: 20170803, end: 20170814
  24. CEFOTAXIME SODIUM [Concomitant]
     Active Substance: CEFOTAXIME SODIUM
     Indication: INFECTION PROPHYLAXIS
     Dosage: 1000 MG, PRN
     Route: 023
     Dates: start: 20170803, end: 20170803
  25. GLUTAMINE COMPLEX [Concomitant]
     Dosage: 670 MG, PRN
     Route: 048
     Dates: start: 20170812, end: 20170812
  26. DOXAZOSIN MESYLATE. [Concomitant]
     Active Substance: DOXAZOSIN MESYLATE
     Dosage: 4 MG, BID
     Route: 048
     Dates: start: 20170813, end: 20170813
  27. FUROSEMIDE. [Concomitant]
     Active Substance: FUROSEMIDE
     Dosage: 120 MG, PRN
     Dates: start: 20170805, end: 20170805
  28. FUROSEMIDE. [Concomitant]
     Active Substance: FUROSEMIDE
     Dosage: 40 MG, PRN
     Route: 042
     Dates: start: 20170803, end: 20170803
  29. IMIPENEM AND CILASTATIN [Concomitant]
     Active Substance: CILASTATIN SODIUM\IMIPENEM
     Dosage: 500 MG, TID
     Route: 042
     Dates: start: 20170804, end: 20170811
  30. PIOGLITAZONE HYDROCHLORIDE. [Concomitant]
     Active Substance: PIOGLITAZONE HYDROCHLORIDE
     Indication: PROPHYLAXIS
     Dosage: 30 MG, BID
     Route: 042
     Dates: start: 20170803, end: 20170804
  31. TERBUTALINE SULFATE. [Concomitant]
     Active Substance: TERBUTALINE SULFATE
     Indication: LUNG DISORDER
     Dosage: 0.75 MG, TID
     Route: 055
     Dates: start: 20170803, end: 20170803
  32. VALSARTAN. [Concomitant]
     Active Substance: VALSARTAN
     Indication: PRODUCT USED FOR UNKNOWN INDICATION
     Dosage: 80 MG, PRN
     Route: 048
     Dates: start: 20170803, end: 20170803
  33. VITAMINE C [Concomitant]
     Active Substance: ASCORBIC ACID
     Indication: HYPOVITAMINOSIS
     Dosage: 2000 MG, QD
     Route: 042
     Dates: start: 20170804, end: 20170807
  34. METHYLPREDNISOLONE SODIUM SUCCINATE. [Suspect]
     Active Substance: METHYLPREDNISOLONE SODIUM SUCCINATE
     Dosage: 400 MG, QD
     Route: 065
     Dates: start: 20170811, end: 20170811
  35. AMLODIPINE BESYLATE. [Concomitant]
     Active Substance: AMLODIPINE BESYLATE
     Indication: PRODUCT USED FOR UNKNOWN INDICATION
     Dosage: 5 MG, PRN
     Route: 048
     Dates: start: 20170803, end: 20170803
  36. BUCINNAZINE HYDROCHLORIDE [Concomitant]
     Indication: PAIN
     Dosage: 100 MG, PRN
     Route: 030
     Dates: start: 20170814
  37. CEFOTAXIME SODIUM [Concomitant]
     Active Substance: CEFOTAXIME SODIUM
     Dosage: 2000 MG, BID
     Route: 042
     Dates: start: 20170803, end: 20170804
  38. FRUCTOSE [Concomitant]
     Active Substance: FRUCTOSE
     Indication: ASTHENIA
     Dosage: 50 G, PRN
     Route: 042
     Dates: start: 20170803, end: 20170803
  39. HUMAN ALBUMIN [Concomitant]
     Active Substance: ALBUMIN HUMAN
     Dosage: 10 G, PRN
     Route: 042
     Dates: start: 20170814
  40. PIOGLITAZONE HYDROCHLORIDE. [Concomitant]
     Active Substance: PIOGLITAZONE HYDROCHLORIDE
     Dosage: 30 MG, PRN
     Route: 042
     Dates: start: 20170803, end: 20170803
  41. ULINASTATIN [Concomitant]
     Active Substance: ULINASTATIN
     Dosage: 100000 IU, BID
     Route: 042
     Dates: start: 20170803
  42. VALSART/AMLODIPINE SANDOZ [Concomitant]
     Indication: PRODUCT USED FOR UNKNOWN INDICATION
     Dosage: 1 DF, PRN
     Route: 048
     Dates: start: 20170803, end: 20170803
  43. TRIMETAZIDINE DIHYDROCHLORIDE [Concomitant]
     Active Substance: TRIMETAZIDINE DIHYDROCHLORIDE
     Indication: PROPHYLAXIS
     Dosage: 20 MG, TID
     Route: 048
     Dates: start: 20170804
  44. BASILIXIMAB [Suspect]
     Active Substance: BASILIXIMAB
     Indication: RENAL TRANSPLANT
     Dosage: 20 MG, QD
     Route: 065
     Dates: start: 20170802, end: 20170802
  45. TACROLIMUS. [Suspect]
     Active Substance: TACROLIMUS
     Dosage: 7.5 MG, QD
     Route: 065
     Dates: start: 20170809
  46. BENAZEPRIL HYDROCHLORIDE. [Concomitant]
     Active Substance: BENAZEPRIL HYDROCHLORIDE
     Dosage: 10 MG, BID
     Route: 048
     Dates: start: 20170804
  47. GLUTAMINE COMPLEX [Concomitant]
     Indication: PROPHYLAXIS
     Dosage: 670 MG, PRN
     Route: 042
     Dates: start: 20170806, end: 20170806
  48. CRAVIT [Concomitant]
     Active Substance: LEVOFLOXACIN
     Indication: PRODUCT USED FOR UNKNOWN INDICATION
     Dosage: 100 ML, PRN
     Route: 042
     Dates: start: 20170802, end: 20170802
  49. DILTIAZEM HYDROCHLORIDE. [Concomitant]
     Active Substance: DILTIAZEM HYDROCHLORIDE
     Indication: PRODUCT USED FOR UNKNOWN INDICATION
     Dosage: 30 MG, BID
     Route: 048
     Dates: start: 20170703
  50. DOXAZOSIN MESYLATE. [Concomitant]
     Active Substance: DOXAZOSIN MESYLATE
     Indication: PRODUCT USED FOR UNKNOWN INDICATION
     Dosage: 4 MG, PRN
     Route: 048
     Dates: start: 20170803, end: 20170803
  51. HUMAN ALBUMIN [Concomitant]
     Active Substance: ALBUMIN HUMAN
     Indication: PRODUCT USED FOR UNKNOWN INDICATION
     Dosage: 10 G, PRN
     Route: 042
     Dates: start: 20170802, end: 20170802
  52. HUMAN ALBUMIN [Concomitant]
     Active Substance: ALBUMIN HUMAN
     Dosage: 10 G, PRN
     Route: 042
     Dates: start: 20170805, end: 20170805
  53. INSULIN GLARGINE [Concomitant]
     Active Substance: INSULIN GLARGINE
     Dosage: 14 IU, QD
     Route: 023
     Dates: start: 20170813
  54. NITROGLYCERIN. [Concomitant]
     Active Substance: NITROGLYCERIN
     Indication: PRODUCT USED FOR UNKNOWN INDICATION
     Dosage: 20 MG, PRN
     Route: 042
     Dates: start: 20170802, end: 20170802
  55. SODIUM LACTATE. [Concomitant]
     Active Substance: SODIUM LACTATE
     Indication: CARDIOVASCULAR DISORDER
     Dosage: 3000 ML, PRN
     Route: 042
     Dates: start: 20170803, end: 20170803
  56. TERAZOSIN [Concomitant]
     Active Substance: TERAZOSIN\TERAZOSIN HYDROCHLORIDE
     Dosage: 2 MG, BID
     Route: 048
     Dates: start: 20170803, end: 20170813
  57. VALSART/AMLODIPINE SANDOZ [Concomitant]
     Dosage: 1 DF, BID
     Route: 048
     Dates: start: 20170803, end: 20170806
  58. MIZORIBINE [Suspect]
     Active Substance: MIZORIBINE
     Indication: PRODUCT USED FOR UNKNOWN INDICATION
     Dosage: 150 MG, QD
     Route: 065
     Dates: start: 20170814
  59. TACROLIMUS. [Suspect]
     Active Substance: TACROLIMUS
     Indication: PRODUCT USED FOR UNKNOWN INDICATION
     Dosage: 7.5 MG, QD
     Route: 065
     Dates: start: 20170803, end: 20170803
  60. TACROLIMUS. [Suspect]
     Active Substance: TACROLIMUS
     Dosage: 8 MG, QD
     Route: 065
     Dates: start: 20170804, end: 20170808
  61. CHYMOTRYPSIN [Concomitant]
     Active Substance: CHYMOTRYPSIN
     Indication: PRODUCTIVE COUGH
  62. DOPAMINE HYCROCHLORIDE [Concomitant]
     Active Substance: DOPAMINE HYDROCHLORIDE
     Indication: CARDIOVASCULAR DISORDER
     Dosage: 10 MG, QD
     Route: 042
     Dates: start: 20170803
  63. FUROSEMIDE. [Concomitant]
     Active Substance: FUROSEMIDE
     Indication: POLYURIA
     Dosage: 120 MG, PRN
     Route: 042
     Dates: start: 20170803, end: 20170803
  64. INSULIN GLARGINE [Concomitant]
     Active Substance: INSULIN GLARGINE
     Indication: PRODUCT USED FOR UNKNOWN INDICATION
     Dosage: 10 IU, QD
     Route: 023
     Dates: start: 20170811, end: 20170813
  65. TERAZOSIN [Concomitant]
     Active Substance: TERAZOSIN\TERAZOSIN HYDROCHLORIDE
     Indication: PRODUCT USED FOR UNKNOWN INDICATION
     Dosage: 2 MG, PRN
     Route: 048
     Dates: start: 20170803, end: 20170803
  66. TERBUTALINE SULFATE. [Concomitant]
     Active Substance: TERBUTALINE SULFATE
     Indication: PRODUCTIVE COUGH
  67. METOPROLOL TARTRATE. [Concomitant]
     Active Substance: METOPROLOL TARTRATE
     Indication: HYPERTENSION
     Dosage: 47.5 MG, QD
     Route: 048
     Dates: start: 20170804
  68. MYFORTIC [Suspect]
     Active Substance: MYCOPHENOLATE SODIUM
     Dosage: 900 MG, QD
     Route: 065
     Dates: start: 20170808, end: 20170813
  69. CICLOSPORIN [Suspect]
     Active Substance: CYCLOSPORINE
     Indication: RENAL TRANSPLANT
     Dosage: 125 MG, QD
     Route: 065
     Dates: start: 20170814
  70. ALANYL GLUTAMINE [Concomitant]
     Active Substance: ALANYL GLUTAMINE
     Indication: PRODUCT USED FOR UNKNOWN INDICATION
     Dosage: 100 ML, PRN
     Route: 042
     Dates: start: 20170803, end: 20170803
  71. AMBROXOL HYDROCHLORIDE [Concomitant]
     Active Substance: AMBROXOL HYDROCHLORIDE
     Indication: LUNG DISORDER
     Dosage: 30 MG, PRN
     Route: 042
     Dates: start: 20170803, end: 20170803
  72. AMINO ACID COMPLEX [Concomitant]
     Active Substance: AMINO ACIDS
     Indication: PRODUCT USED FOR UNKNOWN INDICATION
     Dosage: 500 ML, PRN
     Route: 042
     Dates: start: 20170803, end: 20170803
  73. FELODIPINE. [Concomitant]
     Active Substance: FELODIPINE
     Indication: PRODUCT USED FOR UNKNOWN INDICATION
     Dosage: 5 MG, PRN
     Route: 048
     Dates: start: 20170806, end: 20170806
  74. HEPARIN SODIUM. [Concomitant]
     Active Substance: HEPARIN SODIUM
     Indication: PRODUCT USED FOR UNKNOWN INDICATION
     Dosage: UNK IU, QD
     Route: 042
     Dates: start: 20170802
  75. HUMAN ALBUMIN [Concomitant]
     Active Substance: ALBUMIN HUMAN
     Dosage: 10 G, PRN
     Route: 042
     Dates: start: 20170803, end: 20170803
  76. INSULIN DETEMIR [Concomitant]
     Active Substance: INSULIN DETEMIR
     Indication: PRODUCT USED FOR UNKNOWN INDICATION
     Dosage: 10 IU, TID
     Route: 023
     Dates: start: 20170811
  77. INSULIN [Concomitant]
     Active Substance: INSULIN NOS
     Dosage: 10 IU, PRN
     Route: 058
     Dates: start: 20170811, end: 20170811
  78. PHENOBARBITAL. [Concomitant]
     Active Substance: PHENOBARBITAL
     Indication: SEDATION
     Dosage: 300 UG, PRN
     Route: 030
     Dates: start: 20170802, end: 20170802
  79. SODIUM BICARBONATE. [Concomitant]
     Active Substance: SODIUM BICARBONATE
     Indication: ACIDOSIS
     Dosage: 250 ML, PRN
     Route: 042
     Dates: start: 20170803, end: 20170803
  80. REDUCED GLUTATHIONE SODIUM [Concomitant]
     Active Substance: GLUTATHIONE
     Indication: PROPHYLAXIS
     Dosage: 1.8 G, QD
     Route: 042
     Dates: start: 20170804, end: 20170807
  81. CICLOSPORIN [Suspect]
     Active Substance: CYCLOSPORINE
     Indication: DELAYED GRAFT FUNCTION
  82. METHYLPREDNISOLONE SODIUM SUCCINATE. [Suspect]
     Active Substance: METHYLPREDNISOLONE SODIUM SUCCINATE
     Indication: DELAYED GRAFT FUNCTION
     Dosage: 500 MG, QD
     Route: 065
     Dates: start: 20170803, end: 20170805
  83. METHYLPREDNISOLONE SODIUM SUCCINATE. [Suspect]
     Active Substance: METHYLPREDNISOLONE SODIUM SUCCINATE
     Dosage: 40 MG, QD
     Route: 065
     Dates: start: 20170808, end: 20170808
  84. METHYLPREDNISOLONE SODIUM SUCCINATE. [Suspect]
     Active Substance: METHYLPREDNISOLONE SODIUM SUCCINATE
     Dosage: 500 MG, QD
     Route: 065
     Dates: start: 20170810, end: 20170810
  85. DROTAVERINE HYDROCHLORIDE [Concomitant]
     Active Substance: DROTAVERINE HYDROCHLORIDE
     Indication: PAIN
     Dosage: 40 MG, PRN
     Route: 030
     Dates: start: 20170814
  86. FUROSEMIDE. [Concomitant]
     Active Substance: FUROSEMIDE
     Dosage: 40 MG, PRN
     Route: 042
     Dates: start: 20170806, end: 20170806
  87. LORATADINE. [Concomitant]
     Active Substance: LORATADINE
     Indication: PRODUCT USED FOR UNKNOWN INDICATION
     Dosage: 10 MG, PRN
     Route: 048
     Dates: start: 20170808, end: 20170808
  88. LOBELINE HYDROCHLORIDE [Concomitant]
     Indication: PRODUCT USED FOR UNKNOWN INDICATION
     Dosage: 12 MG, PRN
     Route: 042
     Dates: start: 20170812
  89. LANSOPRAZOLE. [Concomitant]
     Active Substance: LANSOPRAZOLE
     Indication: PROPHYLAXIS
     Dosage: 30 MG, BID
     Route: 042
     Dates: start: 20170804, end: 20170806
  90. MONTMORILLONITE [Concomitant]
     Active Substance: MONTMORILLONITE
     Indication: DIARRHOEA
     Dosage: 6 G, PRN
     Route: 048
     Dates: start: 20170608, end: 20170806

REACTIONS (6)
  - Haemoglobin decreased [Unknown]
  - Bilirubin conjugated increased [Unknown]
  - Lymphocyte count decreased [Not Recovered/Not Resolved]
  - Neutrophil count increased [Unknown]
  - Diabetes mellitus [Not Recovered/Not Resolved]
  - Delayed graft function [Not Recovered/Not Resolved]

NARRATIVE: CASE EVENT DATE: 20170804
